FAERS Safety Report 8168074-2 (Version None)
Quarter: 2012Q1

REPORT INFORMATION
  Report Type: 
  Country: None (occurrence: None)
  Receive Date: 20120227
  Receipt Date: 20120216
  Transmission Date: 20120608
  Serious: Yes (Hospitalization)
  Sender: FDA-Public Use
  Company Number: PHHY2012MX014451

PATIENT
  Age: 67 Year
  Sex: Male

DRUGS (4)
  1. RASILEZ HCT [Suspect]
     Indication: HYPERTENSION
     Dosage: 1 DF(300 MG ALISKIREN AND 12.5 MG HYDROCHLOROTHIAZIDE) PER DAY
     Dates: start: 20091201
  2. LASIX [Concomitant]
     Indication: POLYURIA
     Dosage: 1 DF, PER DAY
  3. TARKA [Concomitant]
     Indication: HYPERTENSION
     Dosage: 1.5 DF, PER DAY
     Dates: start: 20110101
  4. DISCOVER [Concomitant]
     Indication: HYPERTENSION
     Dosage: 1 DF PER DAY
     Dates: start: 20110101

REACTIONS (1)
  - RETINOPATHY [None]
